FAERS Safety Report 13688709 (Version 1)
Quarter: 2017Q2

REPORT INFORMATION
  Report Type: Spontaneous
  Country: US (occurrence: US)
  Receive Date: 20170623
  Receipt Date: 20170623
  Transmission Date: 20170830
  Serious: Yes (Other)
  Sender: FDA-Public Use
  Company Number: None

PATIENT
  Age: 47 Year
  Sex: Female
  Weight: 90 kg

DRUGS (3)
  1. LORAZEPAM. [Suspect]
     Active Substance: LORAZEPAM
     Indication: BURNING MOUTH SYNDROME
     Dates: start: 20121001, end: 20140723
  2. PROAIR HFA [Concomitant]
     Active Substance: ALBUTEROL SULFATE
  3. MAGNESIUM [Concomitant]
     Active Substance: MAGNESIUM

REACTIONS (7)
  - Glossodynia [None]
  - Dizziness [None]
  - Migraine [None]
  - Heart rate increased [None]
  - Chills [None]
  - Anxiety [None]
  - Gastric disorder [None]

NARRATIVE: CASE EVENT DATE: 20130101
